FAERS Safety Report 13090079 (Version 2)
Quarter: 2017Q1

REPORT INFORMATION
  Report Type: Spontaneous
  Country: US (occurrence: US)
  Receive Date: 20170105
  Receipt Date: 20170209
  Transmission Date: 20170428
  Serious: Yes (Hospitalization, Other)
  Sender: FDA-Public Use
  Company Number: US-GLAXOSMITHKLINE-US2016GSK195307

PATIENT
  Sex: Female

DRUGS (6)
  1. LAMOTRIGINE. [Suspect]
     Active Substance: LAMOTRIGINE
     Dosage: 600 MG, QD
     Route: 048
  2. LAMOTRIGINE. [Suspect]
     Active Substance: LAMOTRIGINE
     Dosage: 400 MG, QD
     Route: 048
  3. LAMICTAL [Concomitant]
     Active Substance: LAMOTRIGINE
  4. LAMOTRIGINE. [Suspect]
     Active Substance: LAMOTRIGINE
     Indication: SEIZURE
     Dosage: 400 MG, BID
     Route: 048
     Dates: start: 2016
  5. LAMOTRIGINE. [Suspect]
     Active Substance: LAMOTRIGINE
     Dosage: 400 MG, QD
     Route: 048
  6. GABAPENTIN. [Concomitant]
     Active Substance: GABAPENTIN

REACTIONS (26)
  - Posture abnormal [Unknown]
  - Off label use [Recovered/Resolved]
  - Tremor [Recovered/Resolved]
  - Overdose [Recovered/Resolved]
  - Diplopia [Recovered/Resolved]
  - Dehydration [Unknown]
  - Psychogenic seizure [Unknown]
  - Weight decreased [Unknown]
  - Drug level above therapeutic [Unknown]
  - Decreased appetite [Unknown]
  - Muscular weakness [Not Recovered/Not Resolved]
  - Emergency care [Unknown]
  - Mental disorder [Unknown]
  - Dreamy state [Recovered/Resolved]
  - Hospitalisation [Unknown]
  - Balance disorder [Unknown]
  - Communication disorder [Recovered/Resolved]
  - Road traffic accident [Unknown]
  - Mood altered [Unknown]
  - Prescribed overdose [Unknown]
  - Vomiting [Recovered/Resolved]
  - Vision blurred [Recovered/Resolved]
  - Gait disturbance [Recovering/Resolving]
  - Muscle rigidity [Unknown]
  - Nerve injury [Not Recovered/Not Resolved]
  - Suicidal ideation [Recovered/Resolved]
